FAERS Safety Report 9738407 (Version 6)
Quarter: 2014Q2

REPORT INFORMATION
  Report Type: Report from Study
  Country: CA (occurrence: CA)
  Receive Date: 20131208
  Receipt Date: 20140422
  Transmission Date: 20141212
  Serious: Yes (Other)
  Sender: FDA-Public Use
  Company Number: CA-ROCHE-1312793

PATIENT
  Age: 73 Year
  Sex: Female
  Weight: 71.7 kg

DRUGS (12)
  1. ACTEMRA [Suspect]
     Indication: RHEUMATOID ARTHRITIS
     Route: 042
     Dates: start: 20130909, end: 20131230
  2. CITALOPRAM [Concomitant]
  3. METHOTREXATE [Concomitant]
  4. PREDNISONE [Concomitant]
  5. SPIRIVA [Concomitant]
  6. ZOPICLONE [Concomitant]
  7. FOLIC ACID [Concomitant]
  8. RISPERDAL [Concomitant]
  9. ADVAIR [Concomitant]
  10. ACTONEL [Concomitant]
  11. TYLENOL [Concomitant]
  12. TYLENOL/CODEINE [Concomitant]
     Route: 065

REACTIONS (10)
  - Gastrooesophageal reflux disease [Recovering/Resolving]
  - Diabetes mellitus [Unknown]
  - Thyroid disorder [Unknown]
  - Vomiting [Recovering/Resolving]
  - Arthralgia [Recovered/Resolved]
  - Arthralgia [Recovered/Resolved]
  - Gingival swelling [Unknown]
  - Oropharyngeal pain [Unknown]
  - Rales [Not Recovered/Not Resolved]
  - Pneumonia [Unknown]
